FAERS Safety Report 9052341 (Version 1)
Quarter: 2013Q1

REPORT INFORMATION
  Report Type: Spontaneous
  Country: US (occurrence: US)
  Receive Date: 20130206
  Receipt Date: 20130206
  Transmission Date: 20140127
  Serious: Yes (Hospitalization)
  Sender: FDA-Public Use
  Company Number: US-TEVA-383851USA

PATIENT
  Age: 57 Year
  Sex: Male
  Weight: 90.8 kg

DRUGS (6)
  1. CLOZAPINE [Suspect]
     Indication: SCHIZOPHRENIA
  2. CLOZAPINE [Suspect]
     Indication: PSYCHOTIC DISORDER
  3. BETA BLOCKER [Concomitant]
     Indication: SCHIZOAFFECTIVE DISORDER
  4. BETA BLOCKER [Concomitant]
     Indication: BIPOLAR DISORDER
  5. DEPAKOTE [Concomitant]
     Indication: BIPOLAR DISORDER
  6. DEPAKOTE [Concomitant]
     Indication: SCHIZOAFFECTIVE DISORDER

REACTIONS (3)
  - Orthostatic hypotension [Not Recovered/Not Resolved]
  - Fall [Not Recovered/Not Resolved]
  - Haemorrhage [Not Recovered/Not Resolved]
